FAERS Safety Report 12155538 (Version 1)
Quarter: 2016Q1

REPORT INFORMATION
  Report Type: Spontaneous
  Country: US (occurrence: US)
  Receive Date: 20160307
  Receipt Date: 20160307
  Transmission Date: 20160526
  Serious: Yes (Hospitalization)
  Sender: FDA-Public Use
  Company Number: US-MALLINCKRODT-T201600662

PATIENT
  Age: 69 Year
  Sex: Male

DRUGS (1)
  1. GABLOFEN [Suspect]
     Active Substance: BACLOFEN
     Indication: MUSCLE SPASTICITY
     Dosage: 69 MCG / DAY
     Route: 037
     Dates: start: 20160204

REACTIONS (1)
  - Seroma [Unknown]

NARRATIVE: CASE EVENT DATE: 20160220
